FAERS Safety Report 18667385 (Version 1)
Quarter: 2020Q4

REPORT INFORMATION
  Report Type: Spontaneous
  Country: IT (occurrence: IT)
  Receive Date: 20201228
  Receipt Date: 20201228
  Transmission Date: 20210114
  Serious: No
  Sender: FDA-Public Use
  Company Number: IT-TOLMAR, INC.-20IT024237

PATIENT
  Sex: Female

DRUGS (7)
  1. LEVETIRACETAM. [Suspect]
     Active Substance: LEVETIRACETAM
     Indication: NEONATAL SEIZURE
     Dosage: 40 MG/KG ADMINISTERED AS A BOLUS
     Route: 042
  2. HYDROCORTISONE. [Concomitant]
     Active Substance: HYDROCORTISONE
     Indication: NEONATAL SEIZURE
     Dosage: 5 MG/KG
     Route: 065
  3. LEVETIRACETAM. [Suspect]
     Active Substance: LEVETIRACETAM
     Dosage: 10 MG/KG/DOSE
     Route: 042
  4. LEVETIRACETAM. [Suspect]
     Active Substance: LEVETIRACETAM
     Dosage: 150 MG/DAY
     Route: 042
  5. PYRIDOXINE [Concomitant]
     Active Substance: PYRIDOXINE
     Indication: NEONATAL SEIZURE
     Dosage: 100 MG
     Route: 048
  6. MIDAZOLAM. [Concomitant]
     Active Substance: MIDAZOLAM
     Indication: NEONATAL SEIZURE
     Dosage: INFUSION WAS KEPT ON AND UPTITRATED TO 6 UG/KG/MIN
     Route: 042
  7. PHENOBARBITAL. [Concomitant]
     Active Substance: PHENOBARBITAL
     Indication: NEONATAL SEIZURE
     Dosage: 20 MG/KG ADMINISTERED AS A BOLUS
     Route: 065

REACTIONS (1)
  - Drug ineffective [Recovered/Resolved]
